FAERS Safety Report 4560730-8 (Version None)
Quarter: 2005Q1

REPORT INFORMATION
  Report Type: 
  Country: None (occurrence: None)
  Receive Date: 20050121
  Receipt Date: 20050105
  Transmission Date: 20050727
  Serious: Yes (Hospitalization)
  Sender: FDA-Public Use
  Company Number: 2005SE00152

PATIENT
  Age: 47 Year
  Sex: Female
  Weight: 125 kg

DRUGS (2)
  1. SEROQUEL [Suspect]
     Indication: MANIA
     Dates: start: 20041025
  2. LITHIUM [Concomitant]

REACTIONS (1)
  - PLEUROTHOTONUS [None]
